FAERS Safety Report 5366057-9 (Version None)
Quarter: 2007Q2

REPORT INFORMATION
  Report Type: 
  Country: None (occurrence: None)
  Receive Date: 20070619
  Receipt Date: 20070611
  Transmission Date: 20071010
  Serious: Yes (Death)
  Sender: FDA-Public Use
  Company Number: 163-21880-07050247

PATIENT
  Age: 75 Year
  Sex: Male

DRUGS (8)
  1. REVLIMID [Suspect]
     Indication: MULTIPLE MYELOMA
     Dosage: 15 MG, ONCE DAILY FOR 21 DAYS OUT OF Q28D, ORAL
     Route: 048
     Dates: start: 20070108, end: 20070301
  2. ASPIRIN [Concomitant]
  3. ASCORBIC ACID [Concomitant]
  4. L-CARNITINE (LEVOCARNITINE) [Concomitant]
  5. ALPHA-LIPOLIC ACID (THIOCTIC ACID) [Concomitant]
  6. WARFARIN SODIUM [Concomitant]
  7. AVODART [Concomitant]
  8. HYDROCODONE/APAP (PROCET/USA/) [Concomitant]

REACTIONS (2)
  - MALIGNANT NEOPLASM PROGRESSION [None]
  - MULTIPLE MYELOMA [None]
